FAERS Safety Report 6977077-2 (Version None)
Quarter: 2010Q3

REPORT INFORMATION
  Report Type: 
  Country: None (occurrence: None)
  Receive Date: 20100910
  Receipt Date: 20100907
  Transmission Date: 20110219
  Serious: Yes (Hospitalization)
  Sender: FDA-Public Use
  Company Number: FR-BRISTOL-MYERS SQUIBB COMPANY-15278617

PATIENT
  Age: 4 Decade
  Sex: Female

DRUGS (2)
  1. ABILIFY [Suspect]
     Indication: BIPOLAR DISORDER
  2. TEGRETOL [Concomitant]

REACTIONS (3)
  - FALL [None]
  - INJURY [None]
  - LOSS OF CONSCIOUSNESS [None]
